FAERS Safety Report 15537357 (Version 5)
Quarter: 2019Q1

REPORT INFORMATION
  Report Type: Spontaneous
  Country: HU (occurrence: HU)
  Receive Date: 20181022
  Receipt Date: 20190118
  Transmission Date: 20190417
  Serious: Yes (Death, Life-Threatening, Hospitalization, Other)
  Sender: FDA-Public Use
  Company Number: PHHY2018HU132668

PATIENT
  Age: 38 Year
  Sex: Male

DRUGS (6)
  1. APO-FAMOTIDINE [Concomitant]
     Active Substance: FAMOTIDINE
     Indication: PRODUCT USED FOR UNKNOWN INDICATION
     Route: 065
  2. GILENYA [Suspect]
     Active Substance: FINGOLIMOD HYDROCHLORIDE
     Indication: MULTIPLE SCLEROSIS
     Dosage: 1 DF, QD
     Route: 048
     Dates: start: 20150220, end: 20181006
  3. L-THYROXIN [Concomitant]
     Active Substance: LEVOTHYROXINE SODIUM
     Indication: PRODUCT USED FOR UNKNOWN INDICATION
     Route: 065
  4. HUMULIN R [Concomitant]
     Active Substance: INSULIN HUMAN
     Indication: TYPE 1 DIABETES MELLITUS
     Dosage: 3 DF, QD
     Route: 058
  5. MEFORAL [Concomitant]
     Active Substance: METFORMIN HYDROCHLORIDE
     Indication: PRODUCT USED FOR UNKNOWN INDICATION
     Dosage: 2 DF, QD
     Route: 048
  6. HUMULIN N [Concomitant]
     Active Substance: INSULIN HUMAN
     Indication: PRODUCT USED FOR UNKNOWN INDICATION
     Route: 065

REACTIONS (48)
  - Ascites [Fatal]
  - Acute respiratory distress syndrome [Fatal]
  - Sepsis [Fatal]
  - Hydrothorax [Unknown]
  - Chills [Recovered/Resolved]
  - Upper respiratory tract infection [Recovered/Resolved]
  - Hepatic failure [Fatal]
  - Liver disorder [Fatal]
  - Acute kidney injury [Not Recovered/Not Resolved]
  - Hepatomegaly [Not Recovered/Not Resolved]
  - Liver function test increased [Unknown]
  - Infection [Recovered/Resolved]
  - Renal failure [Fatal]
  - Autoimmune hepatitis [Not Recovered/Not Resolved]
  - Abdominal distension [Not Recovered/Not Resolved]
  - C-reactive protein increased [Unknown]
  - Neutrophil count increased [Unknown]
  - Hepatitis A antibody positive [Unknown]
  - Nausea [Fatal]
  - Multiple organ dysfunction syndrome [Fatal]
  - Cardiac failure [Fatal]
  - Septic shock [Fatal]
  - Metabolic acidosis [Not Recovered/Not Resolved]
  - Coagulopathy [Unknown]
  - Vomiting [Not Recovered/Not Resolved]
  - Abdominal pain [Fatal]
  - Pyrexia [Fatal]
  - Respiratory failure [Unknown]
  - Portal hypertension [Not Recovered/Not Resolved]
  - Pneumonia [Not Recovered/Not Resolved]
  - Varicella virus test positive [Unknown]
  - Hepatitis B virus test positive [Unknown]
  - Fatigue [Fatal]
  - Systemic inflammatory response syndrome [Not Recovered/Not Resolved]
  - Dyspnoea [Not Recovered/Not Resolved]
  - Anuria [Unknown]
  - Hypertension [Unknown]
  - Thrombocytopenia [Unknown]
  - Diverticulum intestinal [Not Recovered/Not Resolved]
  - Musculoskeletal chest pain [Not Recovered/Not Resolved]
  - Procalcitonin increased [Unknown]
  - Flatulence [Unknown]
  - Body temperature increased [Unknown]
  - Cardio-respiratory distress [Fatal]
  - Circulatory collapse [Fatal]
  - Sinus tachycardia [Unknown]
  - Intra-abdominal fluid collection [Unknown]
  - Heart rate increased [Unknown]

NARRATIVE: CASE EVENT DATE: 201711
